FAERS Safety Report 21907715 (Version 1)
Quarter: 2023Q1

REPORT INFORMATION
  Report Type: Spontaneous
  Country: FR (occurrence: None)
  Receive Date: 20230125
  Receipt Date: 20230125
  Transmission Date: 20230418
  Serious: Yes (Life-Threatening, Hospitalization, Other)
  Sender: FDA-Public Use
  Company Number: FR-MLMSERVICE-20230110-4033325-1

PATIENT
  Age: 56 Year
  Sex: Female

DRUGS (5)
  1. FLUOXETINE [Suspect]
     Active Substance: FLUOXETINE HYDROCHLORIDE
     Dosage: 20 MG IN THE MORNING AND 20 MG AT NOON
  2. ACETAMINOPHEN [Suspect]
     Active Substance: ACETAMINOPHEN
     Route: 048
  3. BROMAZEPAM [Suspect]
     Active Substance: BROMAZEPAM
     Dosage: IN THE EVENING
  4. BROMAZEPAM [Suspect]
     Active Substance: BROMAZEPAM
  5. OLANZAPINE [Suspect]
     Active Substance: OLANZAPINE
     Dosage: IN THE EVENING

REACTIONS (7)
  - Bezoar [Recovered/Resolved]
  - Renal tubular necrosis [Recovering/Resolving]
  - Metabolic acidosis [Recovering/Resolving]
  - Toxicity to various agents [Recovered/Resolved]
  - Renal failure [Recovering/Resolving]
  - Hepatic failure [Recovering/Resolving]
  - Intentional overdose [Recovered/Resolved]
